FAERS Safety Report 4982133-4 (Version None)
Quarter: 2006Q2

REPORT INFORMATION
  Report Type: 
  Country: None (occurrence: None)
  Receive Date: 20060421
  Receipt Date: 20060412
  Transmission Date: 20061013
  Serious: Yes (Hospitalization, Other)
  Sender: FDA-Public Use
  Company Number: 223463

PATIENT
  Age: 16 Year
  Sex: Female
  Weight: 77.6 kg

DRUGS (2)
  1. NUTROPIN AQ [Suspect]
     Indication: HYPOPITUITARISM
     Dosage: 1.6 MG, QD, SUBCUTANEOUS
     Route: 058
  2. CORTISOL REPLACEMENT (HYDROCORTISONE) [Concomitant]

REACTIONS (2)
  - CEREBROVASCULAR ACCIDENT [None]
  - HYPERTENSION [None]
